FAERS Safety Report 7794431-X (Version None)
Quarter: 2011Q4

REPORT INFORMATION
  Report Type: 
  Country: None (occurrence: None)
  Receive Date: 20111004
  Receipt Date: 20111004
  Transmission Date: 20120403
  Serious: Yes (Life-Threatening, Hospitalization, Disabling, Congenital Anomaly, Other)
  Sender: FDA-Public Use
  Company Number: None

PATIENT
  Age: 1 Day
  Sex: Male
  Weight: 3.1751 kg

DRUGS (1)
  1. TAZORAC [Suspect]
     Indication: ACNE
     Dosage: 2 TIMES A DAY
     Route: 061

REACTIONS (2)
  - PREGNANCY [None]
  - MATERNAL EXPOSURE DURING PREGNANCY [None]
